FAERS Safety Report 12912248 (Version 2)
Quarter: 2016Q4

REPORT INFORMATION
  Report Type: Spontaneous
  Country: IT (occurrence: IT)
  Receive Date: 20161104
  Receipt Date: 20161124
  Transmission Date: 20170207
  Serious: Yes (Other)
  Sender: FDA-Public Use
  Company Number: IT-009507513-1611ITA000177

PATIENT
  Age: 36 Year
  Sex: Female

DRUGS (2)
  1. PEGINTERFERON ALFA-2B [Suspect]
     Active Substance: PEGINTERFERON ALFA-2B
     Dosage: UNK
  2. RIBAVIRIN. [Suspect]
     Active Substance: RIBAVIRIN
     Dosage: UNK
     Route: 048

REACTIONS (1)
  - Pyoderma [Recovered/Resolved]
